FAERS Safety Report 20088680 (Version 1)
Quarter: 2021Q4

REPORT INFORMATION
  Report Type: Spontaneous
  Country: NL (occurrence: NL)
  Receive Date: 20211119
  Receipt Date: 20211119
  Transmission Date: 20220303
  Serious: Yes (Hospitalization)
  Sender: FDA-Public Use
  Company Number: NL-LRB-00324642

PATIENT
  Age: 53 Year
  Sex: Female
  Weight: 61 kg

DRUGS (2)
  1. DICLOFENAC SODIUM [Suspect]
     Active Substance: DICLOFENAC SODIUM
     Indication: Migraine
     Dosage: 2 DAGEN 3 TABLETTEN DICLOFENAC GEBRUIKT
     Route: 065
  2. DEXAMETHASONE [Suspect]
     Active Substance: DEXAMETHASONE
     Indication: Migraine
     Dosage: 1 TABLET PER DAG
     Route: 048
     Dates: start: 20190322

REACTIONS (9)
  - Burning sensation [Not Recovered/Not Resolved]
  - Hyperventilation [Unknown]
  - Blood pressure fluctuation [Unknown]
  - Fatigue [Unknown]
  - Swollen tongue [Unknown]
  - Erythema [Not Recovered/Not Resolved]
  - Pain in jaw [Unknown]
  - Heart rate abnormal [Unknown]
  - Chest discomfort [Unknown]

NARRATIVE: CASE EVENT DATE: 20190301
